FAERS Safety Report 14239776 (Version 1)
Quarter: 2017Q4

REPORT INFORMATION
  Report Type: Spontaneous
  Country: FR (occurrence: FR)
  Receive Date: 20171130
  Receipt Date: 20171130
  Transmission Date: 20180321
  Serious: Yes (Hospitalization)
  Sender: FDA-Public Use
  Company Number: FR-TEVA-2017-FR-827918

PATIENT
  Age: 41 Year
  Sex: Male

DRUGS (1)
  1. VINCRISTINE TEVA 0.1 POUR CENT (1 MG/1 ML) [Suspect]
     Active Substance: VINCRISTINE
     Indication: GLIOMA
     Dosage: PROCOL PCV (PROCARBAZINE, CCNU AND VINCRISTINE)
     Route: 041
     Dates: start: 20171012

REACTIONS (3)
  - Extravasation [Recovering/Resolving]
  - Paraesthesia [Recovering/Resolving]
  - Injection site pain [Recovering/Resolving]

NARRATIVE: CASE EVENT DATE: 20171012
